FAERS Safety Report 23646785 (Version 2)
Quarter: 2024Q2

REPORT INFORMATION
  Report Type: Spontaneous
  Country: US (occurrence: US)
  Receive Date: 20240319
  Receipt Date: 20240404
  Transmission Date: 20240715
  Serious: Yes (Death)
  Sender: FDA-Public Use
  Company Number: US-REGENERON PHARMACEUTICALS, INC.-2024-045447

PATIENT
  Sex: Female

DRUGS (1)
  1. EYLEA [Suspect]
     Active Substance: AFLIBERCEPT
     Indication: Product used for unknown indication
     Dosage: 2 MG, EVERY 8-9 WEEKS, IN RIGHT EYE (FORMULATION: GERRESHEIMER PFS)
     Route: 031
     Dates: start: 20221213, end: 20230516

REACTIONS (2)
  - Haemorrhage [Fatal]
  - Gastrointestinal disorder [Fatal]
